FAERS Safety Report 6986938-X (Version None)
Quarter: 2010Q3

REPORT INFORMATION
  Report Type: 
  Country: None (occurrence: None)
  Receive Date: 20100916
  Receipt Date: 20100908
  Transmission Date: 20110219
  Serious: Yes (Hospitalization)
  Sender: FDA-Public Use
  Company Number: US-BIOGENIDEC-2010BI021943

PATIENT
  Age: 78 Year
  Sex: Female

DRUGS (2)
  1. TYSABRI [Suspect]
     Indication: MULTIPLE SCLEROSIS
     Route: 042
     Dates: start: 20070828
  2. MEDICATIONS (NOS) [Concomitant]

REACTIONS (4)
  - DYSKINESIA [None]
  - RADICULAR PAIN [None]
  - SECONDARY PROGRESSIVE MULTIPLE SCLEROSIS [None]
  - TREMOR [None]
